FAERS Safety Report 18213679 (Version 1)
Quarter: 2020Q3

REPORT INFORMATION
  Report Type: Spontaneous
  Country: US (occurrence: US)
  Receive Date: 20200831
  Receipt Date: 20200831
  Transmission Date: 20201103
  Serious: No
  Sender: FDA-Public Use
  Company Number: None

PATIENT
  Age: 67 Year
  Sex: Male
  Weight: 74 kg

DRUGS (2)
  1. ENOXAPARIN (ENOXAPARIN 40MG/0.4ML INJ) [Suspect]
     Active Substance: ENOXAPARIN
     Indication: DEEP VEIN THROMBOSIS
     Route: 058
     Dates: start: 20200707, end: 20200708
  2. ENOXAPARIN (ENOXAPARIN 40MG/0.4ML INJ) [Suspect]
     Active Substance: ENOXAPARIN
     Indication: PROPHYLAXIS

REACTIONS (4)
  - Nausea [None]
  - Hyponatraemia [None]
  - Hyperkalaemia [None]
  - Vomiting [None]

NARRATIVE: CASE EVENT DATE: 20200708
